FAERS Safety Report 4802100-0 (Version None)
Quarter: 2005Q4

REPORT INFORMATION
  Report Type: 
  Country: None (occurrence: None)
  Receive Date: 20051011
  Receipt Date: 20050928
  Transmission Date: 20060501
  Serious: Yes (Hospitalization, Other)
  Sender: FDA-Public Use
  Company Number: 2005037104

PATIENT
  Sex: Female
  Weight: 93.8946 kg

DRUGS (5)
  1. CELEBREX [Suspect]
     Indication: ARTHRITIS
  2. LOPRESSOR [Suspect]
     Indication: HYPERTENSION
     Dosage: 100 MG (100 MG, 1 IN 1 D), ORAL
     Route: 048
  3. CARDIZEM [Suspect]
     Indication: HYPERTENSION
     Dosage: 120 MG (120 MG, 1 IN 1 D), ORAL
     Route: 048
  4. MAXZIDE [Suspect]
     Indication: HYPERTENSION
     Dosage: 1 IN 1 D, ORAL
     Route: 048
  5. PREDNISONE [Suspect]
     Indication: ILL-DEFINED DISORDER

REACTIONS (7)
  - CHEST DISCOMFORT [None]
  - CHOKING [None]
  - DIZZINESS [None]
  - FATIGUE [None]
  - HEART RATE INCREASED [None]
  - HYPERTENSION [None]
  - SKIN DISCOLOURATION [None]
